FAERS Safety Report 9719188 (Version 1)
Quarter: 2013Q4

REPORT INFORMATION
  Report Type: Spontaneous
  Country: JP (occurrence: JP)
  Receive Date: 20131127
  Receipt Date: 20131127
  Transmission Date: 20140711
  Serious: Yes (Death, Hospitalization)
  Sender: FDA-Public Use
  Company Number: PHHY2013JP135122

PATIENT
  Age: 66 Year
  Sex: Female

DRUGS (4)
  1. HEPARIN [Suspect]
     Dosage: 200 UNITS/DAY
  2. ANTIBIOTICS [Concomitant]
     Indication: PNEUMONIA
  3. CORTICOSTEROIDS [Concomitant]
  4. IMMUNOGLOBULINS [Concomitant]

REACTIONS (4)
  - Acute myeloid leukaemia recurrent [Fatal]
  - Heparin-induced thrombocytopenia [Unknown]
  - Refractoriness to platelet transfusion [Unknown]
  - Platelet count decreased [Unknown]
